FAERS Safety Report 19743721 (Version 1)
Quarter: 2021Q3

REPORT INFORMATION
  Report Type: Spontaneous
  Country: US (occurrence: US)
  Receive Date: 20210824
  Receipt Date: 20210824
  Transmission Date: 20211014
  Serious: No
  Sender: FDA-Public Use
  Company Number: US-BEH-2021135147

PATIENT
  Sex: Female

DRUGS (1)
  1. HIZENTRA [Suspect]
     Active Substance: HUMAN IMMUNOGLOBULIN G
     Indication: COMBINED IMMUNODEFICIENCY
     Dosage: 1 GRAM EVERY 10 DAYS
     Route: 058

REACTIONS (3)
  - Injection site mass [Recovered/Resolved]
  - Injection site pain [Unknown]
  - Malabsorption from administration site [Recovered/Resolved]
